FAERS Safety Report 6803696-X (Version None)
Quarter: 2010Q2

REPORT INFORMATION
  Report Type: 
  Country: None (occurrence: None)
  Receive Date: 20100628
  Receipt Date: 20100618
  Transmission Date: 20101027
  Serious: Yes (Other)
  Sender: FDA-Public Use
  Company Number: IT-EISAI INC.-E3810-03841-SPO-IT

PATIENT
  Sex: Female

DRUGS (2)
  1. PARIET (RABEPRAZOLE) [Suspect]
     Indication: GASTRIC ULCER
     Route: 048
     Dates: start: 20100501
  2. GLIBOMET [Suspect]
     Indication: INTENTIONAL SELF-INJURY
     Route: 048

REACTIONS (1)
  - HYPOGLYCAEMIA [None]
